FAERS Safety Report 7620582-6 (Version None)
Quarter: 2011Q3

REPORT INFORMATION
  Report Type: 
  Country: None (occurrence: None)
  Receive Date: 20110719
  Receipt Date: 20110704
  Transmission Date: 20111222
  Serious: Yes (Other)
  Sender: FDA-Public Use
  Company Number: US-ROCHE-787834

PATIENT

DRUGS (2)
  1. SIROLIMUS [Suspect]
     Dosage: ORAL SOLUTION FOR COHORTS 1 AND 2; TABLETS FOR COHORT 3.
     Route: 050
  2. BEVACIZUMAB [Suspect]
     Route: 042

REACTIONS (8)
  - TRANSAMINASES INCREASED [None]
  - DECREASED APPETITE [None]
  - CONFUSIONAL STATE [None]
  - NEUTROPENIA [None]
  - HYPERTRIGLYCERIDAEMIA [None]
  - HYPERTENSION [None]
  - FATIGUE [None]
  - DIARRHOEA [None]
